FAERS Safety Report 8771907 (Version 1)
Quarter: 2012Q4

REPORT INFORMATION
  Report Type: 
  Country: US (occurrence: US)
  Receive Date: 20120906
  Receipt Date: 20120906
  Transmission Date: 20130627
  Serious: No
  Sender: FDA-Public Use
  Company Number: US-PFIZER INC-2012218288

PATIENT
  Age: 40 Year
  Sex: Female
  Weight: 69.39 kg

DRUGS (9)
  1. LYRICA [Suspect]
     Indication: NEUROPATHY PERIPHERAL
     Dosage: 150 mg, 3x/day
     Route: 048
     Dates: start: 2012, end: 201208
  2. LYRICA [Suspect]
     Indication: PAIN IN EXTREMITY
  3. GABAPENTIN [Suspect]
     Indication: PAIN IN EXTREMITY
     Dosage: 200 mg, 3x/day
  4. GABAPENTIN [Suspect]
     Indication: NEUROPATHY PERIPHERAL
  5. HYDROCODONE [Suspect]
     Indication: BACK PAIN
     Dosage: UNK, 4x/day
  6. HYDROCODONE [Suspect]
     Indication: PAIN IN EXTREMITY
  7. HYDROCODONE [Suspect]
     Indication: NEUROPATHY PERIPHERAL
  8. CITALOPRAM HYDROBROMIDE [Concomitant]
     Indication: ANXIETY
     Dosage: 40 mg, daily
  9. CITALOPRAM HYDROBROMIDE [Concomitant]
     Indication: DEPRESSION

REACTIONS (3)
  - Drug ineffective [Unknown]
  - Pain in extremity [Not Recovered/Not Resolved]
  - Neuropathy peripheral [Not Recovered/Not Resolved]
